FAERS Safety Report 4883484-4 (Version None)
Quarter: 2006Q1

REPORT INFORMATION
  Report Type: 
  Country: None (occurrence: None)
  Receive Date: 20060118
  Receipt Date: 20050412
  Transmission Date: 20060701
  Serious: Yes (Hospitalization)
  Sender: FDA-Public Use
  Company Number: US-MERCK-0504USA02138

PATIENT
  Age: 68 Year
  Sex: Male
  Weight: 88 kg

DRUGS (4)
  1. VIOXX [Suspect]
     Indication: ARTHRITIS
     Route: 048
     Dates: start: 20000601, end: 20041001
  2. NORVASC [Concomitant]
     Route: 065
  3. PLAQUENIL [Concomitant]
     Route: 065
  4. METHOTREXATE [Concomitant]
     Route: 065

REACTIONS (6)
  - ADJUSTMENT DISORDER WITH DEPRESSED MOOD [None]
  - DERMATITIS [None]
  - ISCHAEMIC STROKE [None]
  - OSTEOARTHRITIS [None]
  - RESTLESS LEGS SYNDROME [None]
  - THROMBOSIS [None]
